FAERS Safety Report 9461996 (Version 1)
Quarter: 2013Q3

REPORT INFORMATION
  Report Type: Spontaneous
  Country: US (occurrence: US)
  Receive Date: 20130816
  Receipt Date: 20130816
  Transmission Date: 20140515
  Serious: Yes (Hospitalization)
  Sender: FDA-Public Use
  Company Number: US-SANOFI-AVENTIS-2013SA079506

PATIENT
  Age: 80 Year
  Sex: Male

DRUGS (15)
  1. PLAVIX [Suspect]
     Indication: PRODUCT USED FOR UNKNOWN INDICATION
     Route: 048
     Dates: start: 20110429, end: 20110527
  2. ALEGLITAZAR [Concomitant]
     Indication: CARDIOVASCULAR EVENT PROPHYLAXIS
     Route: 048
     Dates: start: 20110525
  3. NORVASC [Concomitant]
     Route: 048
     Dates: start: 20110511, end: 201107
  4. ASPIRIN [Concomitant]
     Route: 048
     Dates: start: 20110502, end: 20110613
  5. ASPIRIN [Concomitant]
     Route: 048
     Dates: start: 20110614, end: 20121127
  6. GLIPIZIDE [Concomitant]
     Route: 048
     Dates: start: 201103, end: 20111111
  7. VICODIN [Concomitant]
     Dosage: DOSE:1 UNIT(S)
     Route: 048
     Dates: start: 20110516, end: 20121025
  8. PRINIVIL [Concomitant]
     Route: 048
     Dates: start: 20110509, end: 20120927
  9. GLUCOPHAGE [Concomitant]
     Route: 048
     Dates: start: 201103, end: 20121025
  10. NITROSTAT [Concomitant]
     Route: 060
     Dates: start: 20110528, end: 20121128
  11. PROTONIX [Concomitant]
     Route: 048
     Dates: start: 20110308, end: 20121127
  12. EFFIENT [Concomitant]
     Route: 048
     Dates: start: 20110528, end: 20121115
  13. ZOCOR [Concomitant]
     Route: 048
     Dates: start: 20110509, end: 20121126
  14. VIAGRA [Concomitant]
     Route: 048
     Dates: start: 2010, end: 20121025
  15. CARVEDILOL [Concomitant]
     Route: 048
     Dates: start: 20110509, end: 20121127

REACTIONS (1)
  - Troponin increased [Recovered/Resolved]
